FAERS Safety Report 5680480-4 (Version None)
Quarter: 2008Q1

REPORT INFORMATION
  Report Type: 
  Country: None (occurrence: None)
  Receive Date: 20080326
  Receipt Date: 20080321
  Transmission Date: 20080703
  Serious: Yes (Hospitalization)
  Sender: FDA-Public Use
  Company Number: B0513976A

PATIENT
  Age: 61 Year
  Sex: Female
  Weight: 65 kg

DRUGS (3)
  1. MALARONE [Suspect]
     Indication: MALARIA PROPHYLAXIS
     Route: 048
     Dates: start: 20080127, end: 20080215
  2. LIPITOR [Concomitant]
     Dosage: 10MG PER DAY
     Route: 048
     Dates: start: 20050502
  3. BETAHISTINE [Concomitant]
     Dosage: 16MG THREE TIMES PER DAY
     Route: 048
     Dates: start: 20050520

REACTIONS (2)
  - HYPERTENSION [None]
  - TACHYCARDIA [None]
